FAERS Safety Report 15594930 (Version 1)
Quarter: 2018Q4

REPORT INFORMATION
  Report Type: Spontaneous
  Country: US (occurrence: US)
  Receive Date: 20181106
  Receipt Date: 20181106
  Transmission Date: 20190205
  Serious: Yes (Other)
  Sender: FDA-Public Use
  Company Number: US-PRINSTON PHARMACEUTICAL INC.-2018PRN00405

PATIENT
  Age: 63 Year
  Sex: Female
  Weight: 126.98 kg

DRUGS (5)
  1. MYRBETRIQ [Concomitant]
     Active Substance: MIRABEGRON
  2. VALSARTAN. [Suspect]
     Active Substance: VALSARTAN
     Indication: HYPERTENSION
     Dosage: 160 MG, 1X/DAY
     Route: 048
  3. HCTZ [Concomitant]
     Active Substance: HYDROCHLOROTHIAZIDE
  4. ATORVASTATIN [Concomitant]
     Active Substance: ATORVASTATIN
  5. MELOXICAM. [Concomitant]
     Active Substance: MELOXICAM

REACTIONS (8)
  - Abdominal pain [Recovered/Resolved]
  - Haematuria [Unknown]
  - Pain [Recovered/Resolved]
  - Hepatic enzyme increased [Unknown]
  - Renal artery arteriosclerosis [Unknown]
  - Spinal osteoarthritis [Unknown]
  - Abdominal pain upper [Recovered/Resolved]
  - Flank pain [Recovered/Resolved]

NARRATIVE: CASE EVENT DATE: 2017
